FAERS Safety Report 7263477-2 (Version None)
Quarter: 2011Q1

REPORT INFORMATION
  Report Type: 
  Country: None (occurrence: None)
  Receive Date: 20110120
  Receipt Date: 20110107
  Transmission Date: 20110831
  Serious: Yes (Other)
  Sender: FDA-Public Use
  Company Number: IPC201101-000013

PATIENT
  Age: 23 Year
  Sex: Female
  Weight: 63.5036 kg

DRUGS (2)
  1. ATENOLOL [Suspect]
     Indication: CARDIOMYOPATHY
     Dosage: HALF 12.5MG IN MORNING + ONE IN AFTERNOO, ORAL
     Route: 048
  2. LISINOPRIL [Suspect]
     Indication: CARDIOMYOPATHY
     Dosage: 5 MG ONCE DAILY AT NIGHT

REACTIONS (4)
  - SYNCOPE [None]
  - ERYTHEMA [None]
  - CONVULSION [None]
  - DIZZINESS [None]
